FAERS Safety Report 13923293 (Version 2)
Quarter: 2017Q3

REPORT INFORMATION
  Report Type: Report from Study
  Country: None (occurrence: BE)
  Receive Date: 20170831
  Receipt Date: 20170913
  Transmission Date: 20171127
  Serious: Yes (Hospitalization)
  Sender: FDA-Public Use
  Company Number: BE-ABBVIE-17K-013-2086776-00

PATIENT
  Age: 69 Year
  Sex: Male

DRUGS (4)
  1. DUODOPA [Suspect]
     Active Substance: CARBIDOPA\LEVODOPA
     Dosage: MD= 8 ML; CD= 3 ML/H DURING 16 HRS; EDA= 1.5 ML
     Route: 050
     Dates: start: 20170912
  2. DUODOPA [Suspect]
     Active Substance: CARBIDOPA\LEVODOPA
     Indication: PARKINSON^S DISEASE
     Dosage: MD: 8 ML??CD: 2.3 ML/HR DURING 16 HRS??EDA: 1 ML
     Route: 050
     Dates: start: 20170821, end: 20170825
  3. DUODOPA [Suspect]
     Active Substance: CARBIDOPA\LEVODOPA
     Dosage: MD: 8 ML??CD: 2.4 ML/HR DURING 16 HRS??EDA: 1.5 ML
     Route: 050
     Dates: start: 20170825, end: 20170828
  4. DUODOPA [Suspect]
     Active Substance: CARBIDOPA\LEVODOPA
     Dosage: MD: 8 ML??CD: 2.6 ML/HR DURING 16 HRS??EDA: 1.5 ML
     Route: 050
     Dates: start: 20170828, end: 20170912

REACTIONS (2)
  - Urinary tract infection [Unknown]
  - Freezing phenomenon [Unknown]

NARRATIVE: CASE EVENT DATE: 201708
